FAERS Safety Report 4804155-6 (Version None)
Quarter: 2005Q4

REPORT INFORMATION
  Report Type: 
  Country: None (occurrence: None)
  Receive Date: 20051014
  Receipt Date: 20051005
  Transmission Date: 20060501
  Serious: Yes (Death)
  Sender: FDA-Public Use
  Company Number: 2005AL003878

PATIENT
  Sex: Female

DRUGS (1)
  1. KADIAN [Suspect]

REACTIONS (2)
  - BRAIN DEATH [None]
  - OVERDOSE [None]
